APPROVED DRUG PRODUCT: CYCLOPHOSPHAMIDE
Active Ingredient: CYCLOPHOSPHAMIDE
Strength: 25MG
Dosage Form/Route: CAPSULE;ORAL
Application: N203856 | Product #001 | TE Code: AB
Applicant: HIKMA PHARMACEUTICALS USA INC
Approved: Sep 16, 2013 | RLD: Yes | RS: No | Type: RX